FAERS Safety Report 9587735 (Version 1)
Quarter: 2013Q4

REPORT INFORMATION
  Report Type: Spontaneous
  Country: US (occurrence: US)
  Receive Date: 20131003
  Receipt Date: 20131003
  Transmission Date: 20140711
  Serious: No
  Sender: FDA-Public Use
  Company Number: US-COVIDIEN/TYCO HEALTHCARE/MALLINCKRODT-T201300054

PATIENT
  Age: 59 Year
  Sex: Male

DRUGS (2)
  1. EXALGO EXTENDED RELEASE [Suspect]
     Indication: INTERVERTEBRAL DISC PROTRUSION
     Dosage: 16 MG, 2 TABLETS QD
     Dates: start: 201102
  2. PERCOCET                           /00867901/ [Concomitant]
     Dosage: 10 MG, UP TO 3 TIMES DAILY PRN

REACTIONS (2)
  - Constipation [Unknown]
  - Dry mouth [Unknown]
